FAERS Safety Report 8229860-3 (Version None)
Quarter: 2012Q1

REPORT INFORMATION
  Report Type: 
  Country: None (occurrence: None)
  Receive Date: 20120323
  Receipt Date: 20120313
  Transmission Date: 20120608
  Serious: Yes (Other)
  Sender: FDA-Public Use
  Company Number: BR-AMGEN-BRASP2012017228

PATIENT
  Sex: Female
  Weight: 83 kg

DRUGS (11)
  1. NIMESULIDE [Concomitant]
     Dosage: UNK
  2. ENBREL [Suspect]
     Dosage: 50 MG, WEEKLY,POWDER AND SOLVENT FOR SOLUTION FOR INJECTION
  3. CAPTOPRIL [Concomitant]
     Dosage: 25 MG, UNK
  4. METHOTREXATE [Concomitant]
     Dosage: UNK
  5. CYCLOBENZAPRINE HCL [Concomitant]
     Dosage: UNK
  6. SODIUM CARBONATE [Concomitant]
     Dosage: UNK
  7. ENBREL [Suspect]
     Indication: RHEUMATOID ARTHRITIS
     Dosage: UNK,SOLUTION FOR INJECTION IN PRE-FILLED PEN
     Dates: start: 20120101
  8. METFORMIN HCL [Concomitant]
     Dosage: 850 MG, UNK
  9. ASPIRIN [Concomitant]
     Dosage: 100 MG, UNK
  10. DIPROSPAN                          /00582101/ [Concomitant]
     Dosage: UNK
  11. DINAFLEX DUO [Concomitant]
     Dosage: 1.5 MG, UNK

REACTIONS (6)
  - NEPHROLITHIASIS [None]
  - WALKING DISABILITY [None]
  - INJECTION SITE DISCOLOURATION [None]
  - RENAL CYST [None]
  - ARTHROPATHY [None]
  - PAIN [None]
